FAERS Safety Report 15706157 (Version 2)
Quarter: 2019Q1

REPORT INFORMATION
  Report Type: Spontaneous
  Country: US (occurrence: US)
  Receive Date: 20181210
  Receipt Date: 20190108
  Transmission Date: 20190417
  Serious: No
  Sender: FDA-Public Use
  Company Number: US-BAYER-2018-226670

PATIENT
  Age: 28 Year
  Sex: Female

DRUGS (4)
  1. MIRENA [Suspect]
     Active Substance: LEVONORGESTREL
     Indication: CONTRACEPTION
     Dosage: 20 MCG/24HR, CONT
     Route: 015
     Dates: start: 20181105, end: 20181105
  2. MIRENA [Suspect]
     Active Substance: LEVONORGESTREL
     Indication: CONTRACEPTION
     Dosage: 20 MCG/24HR, CONT
     Route: 015
     Dates: start: 20181105, end: 20181105
  3. MIRENA [Suspect]
     Active Substance: LEVONORGESTREL
     Indication: CONTRACEPTION
  4. POVIDONE-IODINE. [Concomitant]
     Active Substance: POVIDONE-IODINE

REACTIONS (5)
  - Post procedural discomfort [None]
  - Procedural anxiety [None]
  - Complication of device insertion [None]
  - Procedural pain [None]
  - Post procedural discomfort [None]

NARRATIVE: CASE EVENT DATE: 20181105
